FAERS Safety Report 25880493 (Version 1)
Quarter: 2025Q4

REPORT INFORMATION
  Report Type: Spontaneous
  Country: GB (occurrence: GB)
  Receive Date: 20251004
  Receipt Date: 20251004
  Transmission Date: 20260117
  Serious: Yes (Other)
  Sender: AUROBINDO
  Company Number: GB-MHRA-MED-202509231559499180-SQYJD

PATIENT
  Sex: Male
  Weight: 80 kg

DRUGS (2)
  1. OXALIPLATIN [Suspect]
     Active Substance: OXALIPLATIN
     Indication: Chemotherapy
     Dosage: 85 MILLIGRAM/SQ. METER
     Route: 065
     Dates: start: 20250903, end: 20250917
  2. FLUOROURACIL [Concomitant]
     Active Substance: FLUOROURACIL
     Indication: Chemotherapy
     Dosage: UNK
     Route: 065
     Dates: start: 20250903

REACTIONS (1)
  - Neuropathy peripheral [Recovering/Resolving]

NARRATIVE: CASE EVENT DATE: 20250903
